FAERS Safety Report 8978188 (Version 1)
Quarter: 2012Q4

REPORT INFORMATION
  Report Type: 
  Country: US (occurrence: US)
  Receive Date: 20121221
  Receipt Date: 20121221
  Transmission Date: 20130627
  Serious: Yes (Other)
  Sender: FDA-Public Use
  Company Number: US-PFIZER INC-2012321390

PATIENT
  Sex: Male

DRUGS (6)
  1. CARDURA [Suspect]
     Dosage: UNK
  2. NEURONTIN [Suspect]
     Dosage: UNK
  3. LYRICA [Suspect]
     Dosage: UNK
  4. VIAGRA [Suspect]
     Dosage: UNK
  5. CHANTIX [Suspect]
     Dosage: UNK
  6. GEODON [Suspect]
     Dosage: UNK

REACTIONS (2)
  - Myocardial infarction [Unknown]
  - Stent placement [Unknown]
